FAERS Safety Report 22211254 (Version 1)
Quarter: 2023Q2

REPORT INFORMATION
  Report Type: Spontaneous
  Country: US (occurrence: US)
  Receive Date: 20230414
  Receipt Date: 20230414
  Transmission Date: 20230722
  Serious: Yes (Hospitalization, Other)
  Sender: FDA-Public Use
  Company Number: US-Accord-308258

PATIENT
  Age: 15 Year
  Sex: Female

DRUGS (4)
  1. CARBOPLATIN [Suspect]
     Active Substance: CARBOPLATIN
     Indication: Renal cell carcinoma
     Dosage: 400 MG/M2 ON DAY 1
  2. GEMCITABINE [Suspect]
     Active Substance: GEMCITABINE
     Indication: Renal cell carcinoma
     Dosage: 75% OF PLANNED DOSE
  3. PACLITAXEL [Suspect]
     Active Substance: PACLITAXEL
     Indication: Renal cell carcinoma
     Dosage: 80 MG/M2 ON DAYS 1, 8 AND 15
  4. LEVOTHYROXINE [Concomitant]
     Active Substance: LEVOTHYROXINE
     Indication: Hypothyroidism

REACTIONS (7)
  - Thrombocytopenia [Recovered/Resolved]
  - Colitis [Unknown]
  - Gastroenteritis Escherichia coli [Unknown]
  - Escherichia urinary tract infection [Unknown]
  - Off label use [Unknown]
  - Candida infection [Unknown]
  - Staphylococcal infection [Unknown]
